FAERS Safety Report 10225056 (Version 2)
Quarter: 2014Q2

REPORT INFORMATION
  Report Type: Report from Study
  Country: US (occurrence: US)
  Receive Date: 20140609
  Receipt Date: 20140609
  Transmission Date: 20141212
  Serious: Yes (Other)
  Sender: FDA-Public Use
  Company Number: PHEH2014US008859

PATIENT
  Age: 6 Year
  Sex: Male
  Weight: 21.4 kg

DRUGS (8)
  1. TOBI [Suspect]
     Indication: CYSTIC FIBROSIS
     Dosage: 1 DF, BID NEBULIZED
     Dates: end: 20130901
  2. ALBUTEROL [Concomitant]
     Indication: CYSTIC FIBROSIS
     Dosage: 0.839 BID
     Route: 055
  3. PULMOZYME [Concomitant]
     Indication: CYSTIC FIBROSIS
     Dosage: 1 MG/ML, BID
     Route: 055
  4. PREVACID [Concomitant]
     Indication: CYSTIC FIBROSIS
     Dosage: 30 MG, QD
     Route: 048
  5. ZANTAC [Concomitant]
     Indication: CYSTIC FIBROSIS
     Dosage: 75 MG, BID
     Route: 048
     Dates: start: 20140325
  6. CREON [Concomitant]
     Indication: CYSTIC FIBROSIS
     Dosage: 12000 U, WITH MEAL AND SNACKS
     Route: 048
  7. PROBIOTICS [Concomitant]
  8. MULTIVITAMIN                       /00097801/ [Concomitant]

REACTIONS (8)
  - Pseudomonas infection [Recovered/Resolved]
  - Pulmonary function test decreased [Recovered/Resolved]
  - Cough [Recovered/Resolved]
  - Gastroenteritis viral [Unknown]
  - Upper respiratory tract infection [Recovered/Resolved]
  - Viral infection [Recovered/Resolved]
  - Abdominal discomfort [Recovered/Resolved]
  - Nasopharyngitis [Unknown]
